FAERS Safety Report 8064709-3 (Version None)
Quarter: 2012Q1

REPORT INFORMATION
  Report Type: 
  Country: None (occurrence: None)
  Receive Date: 20120123
  Receipt Date: 20120111
  Transmission Date: 20120608
  Serious: Yes (Hospitalization)
  Sender: FDA-Public Use
  Company Number: US-ELI_LILLY_AND_COMPANY-US201107008103

PATIENT
  Sex: Female

DRUGS (18)
  1. FORTEO [Suspect]
     Dosage: 20 UG, QD
     Route: 065
  2. FORTEO [Suspect]
     Dosage: 20 UG, QOD
  3. FORTEO [Suspect]
     Dosage: 20 UG, QD
  4. PANTOPRAZOLE [Concomitant]
     Dosage: 40 MG, UNK
  5. ATORVASTATIN [Concomitant]
     Dosage: 20 MG, UNK
  6. FEXOFENADINE [Concomitant]
     Dosage: 180 MG, UNK
  7. PHAZYME [Concomitant]
     Dosage: 18 MG, UNK
  8. OXYCODONE AND ACETAMINOPHEN [Concomitant]
     Indication: PAIN
     Dosage: 5 MG, PRN
  9. VITAMIN D [Concomitant]
     Dosage: 1000 IU, BID
  10. ASPIRIN [Concomitant]
     Dosage: UNK, BID
  11. FORTEO [Suspect]
     Indication: OSTEOPOROSIS
     Dosage: 20 UG, QD
     Route: 065
     Dates: start: 20110716
  12. CALCIUM [Concomitant]
     Dosage: 600 MG, QD
  13. MULTI-VITAMIN [Concomitant]
  14. FORTEO [Suspect]
     Dosage: 20 UG, QOD
     Route: 065
  15. BENAZEPRIL HYDROCHLORIDE [Concomitant]
     Dosage: 10 MG, UNK
  16. FLUTICASONE PROPIONATE [Concomitant]
     Dosage: 50 MG, UNK
  17. FORTEO [Suspect]
     Dosage: 20 UG, QD
     Route: 065
  18. ANTIBIOTICS [Concomitant]

REACTIONS (6)
  - HIP ARTHROPLASTY [None]
  - PALPITATIONS [None]
  - INAPPROPRIATE SCHEDULE OF DRUG ADMINISTRATION [None]
  - DIZZINESS [None]
  - HEART RATE INCREASED [None]
  - INJECTION SITE ERYTHEMA [None]
